FAERS Safety Report 5280493-0 (Version None)
Quarter: 2007Q1

REPORT INFORMATION
  Report Type: 
  Country: None (occurrence: None)
  Receive Date: 20061215
  Receipt Date: 20061004
  Transmission Date: 20070707
  Serious: Yes (Life-Threatening, Other)
  Sender: FDA-Public Use
  Company Number: HQWYE649005OCT06

PATIENT
  Sex: Female

DRUGS (2)
  1. EFFEXOR XR [Suspect]
     Indication: DEPRESSION
     Dosage: 150 MG 1X PER 1 DAY, ORAL
     Route: 048
  2. ADDERALL 10 [Suspect]
     Dosage: DOSE AND FREQUENCY UNSPECIFIED, ORAL
     Route: 048

REACTIONS (1)
  - GRAND MAL CONVULSION [None]
